FAERS Safety Report 8123999-9 (Version None)
Quarter: 2012Q1

REPORT INFORMATION
  Report Type: 
  Country: None (occurrence: None)
  Receive Date: 20120209
  Receipt Date: 20120206
  Transmission Date: 20120608
  Serious: Yes (Life-Threatening, Other)
  Sender: FDA-Public Use
  Company Number: US-JNJFOC-20111204640

PATIENT
  Sex: Female
  Weight: 71.67 kg

DRUGS (20)
  1. FLONASE [Concomitant]
  2. NITROFURANTOIN [Concomitant]
  3. REGLAN [Concomitant]
  4. SINGULAIR [Concomitant]
  5. AMBIEN [Concomitant]
  6. ATROVENT [Concomitant]
  7. CLONAZEPAM [Concomitant]
  8. CELEBREX [Concomitant]
  9. XARELTO [Suspect]
     Indication: PROPHYLAXIS
     Route: 048
     Dates: start: 20111206, end: 20111207
  10. XARELTO [Suspect]
     Indication: THROMBOSIS PROPHYLAXIS
     Route: 048
     Dates: start: 20111206, end: 20111207
  11. DULCOLAX [Concomitant]
  12. OMEPRAZOLE [Concomitant]
  13. BENADRYL [Concomitant]
  14. ONDANSETRON HCL [Concomitant]
  15. DILAUDID [Concomitant]
  16. OXYCODONE HCL [Concomitant]
  17. XARELTO [Suspect]
     Indication: KNEE ARTHROPLASTY
     Route: 048
     Dates: start: 20111206, end: 20111207
  18. ACETAMINOPHEN [Concomitant]
  19. ALBUTEROL [Concomitant]
  20. ZOCOR [Concomitant]

REACTIONS (3)
  - OESOPHAGEAL CARCINOMA [None]
  - PULMONARY EMBOLISM [None]
  - DEEP VEIN THROMBOSIS [None]
